FAERS Safety Report 17374094 (Version 1)
Quarter: 2020Q1

REPORT INFORMATION
  Report Type: Spontaneous
  Country: US (occurrence: US)
  Receive Date: 20200204
  Receipt Date: 20200204
  Transmission Date: 20200409
  Serious: Yes (Life-Threatening, Hospitalization, Other)
  Sender: FDA-Public Use
  Company Number: None

PATIENT
  Age: 44 Year
  Sex: Female
  Weight: 75 kg

DRUGS (4)
  1. GABAPENTIN. [Suspect]
     Active Substance: GABAPENTIN
     Indication: BACK PAIN
     Route: 048
     Dates: start: 20200129
  2. AMITRIPTYLINE 150 MG NIGHTLY [Concomitant]
  3. BACLOFEN 20MG THREE TIMES DAILY [Concomitant]
  4. HYDROXYZINE 50MG DAILY [Concomitant]

REACTIONS (4)
  - Loss of consciousness [None]
  - Encephalopathy [None]
  - Pupil fixed [None]
  - Acute respiratory failure [None]

NARRATIVE: CASE EVENT DATE: 20200130
